FAERS Safety Report 18174023 (Version 1)
Quarter: 2020Q3

REPORT INFORMATION
  Report Type: Spontaneous
  Country: US (occurrence: US)
  Receive Date: 20200819
  Receipt Date: 20200819
  Transmission Date: 20201103
  Serious: Yes (Hospitalization)
  Sender: FDA-Public Use
  Company Number: None

PATIENT
  Age: 43 Year
  Sex: Female
  Weight: 85.5 kg

DRUGS (1)
  1. BOTOX [Suspect]
     Active Substance: ONABOTULINUMTOXINA
     Indication: MIGRAINE WITH AURA
     Dosage: ?          OTHER FREQUENCY:EVERY THREE MONTHS;?
     Route: 065
     Dates: start: 20200127

REACTIONS (1)
  - Thyroid operation [None]

NARRATIVE: CASE EVENT DATE: 20200819
